FAERS Safety Report 22628399 (Version 1)
Quarter: 2023Q2

REPORT INFORMATION
  Report Type: Spontaneous
  Country: ES (occurrence: ES)
  Receive Date: 20230622
  Receipt Date: 20230622
  Transmission Date: 20230721
  Serious: Yes (Other)
  Sender: FDA-Public Use
  Company Number: ES-Accord-362672

PATIENT
  Age: 76 Year
  Sex: Male

DRUGS (9)
  1. FLUOROURACIL [Suspect]
     Active Substance: FLUOROURACIL
     Indication: Adenocarcinoma gastric
     Dosage: CONTINUOUS INFUSION FOR 24 HOURS
  2. DOCETAXEL [Suspect]
     Active Substance: DOCETAXEL
     Indication: Adenocarcinoma gastric
     Dosage: DAY 1 OF THE 14-DAY CYCLE
  3. OXALIPLATIN [Suspect]
     Active Substance: OXALIPLATIN
     Indication: Adenocarcinoma gastric
  4. LEUCOVORIN [Suspect]
     Active Substance: LEUCOVORIN
     Indication: Adenocarcinoma gastric
  5. OMEPRAZOLE [Concomitant]
     Active Substance: OMEPRAZOLE
     Indication: Prophylaxis
     Dosage: 20 MG (1-0-1)
  6. ONDANSETRON [Concomitant]
     Active Substance: ONDANSETRON
     Indication: Prophylaxis
     Dosage: 1-1-1 DURING THREE DAYS FROM NACT START
  7. DEXAMETHASONE [Concomitant]
     Active Substance: DEXAMETHASONE
     Indication: Prophylaxis
     Dosage: 1-0-0 DURING?THREE DAYS FROM NACT START
  8. ACETAMINOPHEN [Concomitant]
     Active Substance: ACETAMINOPHEN
     Indication: Pain
  9. METAMIZOLE [Concomitant]
     Active Substance: METAMIZOLE
     Indication: Pain

REACTIONS (5)
  - Mucosal inflammation [Unknown]
  - Diarrhoea [Unknown]
  - Neuropathy peripheral [Unknown]
  - Palmar-plantar erythrodysaesthesia syndrome [Unknown]
  - Off label use [Unknown]
